FAERS Safety Report 8273001-3 (Version None)
Quarter: 2012Q2

REPORT INFORMATION
  Report Type: 
  Country: None (occurrence: None)
  Receive Date: 20120411
  Receipt Date: 20120402
  Transmission Date: 20120825
  Serious: Yes (Hospitalization, Other)
  Sender: FDA-Public Use
  Company Number: US-BAYER-2011-094708

PATIENT
  Age: 32 Year
  Sex: Female
  Weight: 88.435 kg

DRUGS (11)
  1. YAZ [Suspect]
     Indication: CONTRACEPTION
     Dosage: UNK UNK, QD
     Route: 048
     Dates: start: 20090101, end: 20100101
  2. METFORMIN HCL [Concomitant]
     Dosage: UNK
     Dates: start: 20091215
  3. PROMETHAZINE [Concomitant]
     Dosage: 25 MG, UNK
     Dates: start: 20100119
  4. AMOXICILINA CLAV [Concomitant]
     Dosage: 875 MG, UNK
     Dates: start: 20100116
  5. HYDROCHLOROTHIAZIDE [Concomitant]
     Dosage: UNK
     Dates: start: 20100208
  6. CHERATUSSIN [CODEINE,GUAIFENESIN,PSEUDOEPHEDRINE] [Concomitant]
     Dosage: UNK
     Dates: start: 20100123
  7. FORTAMET [Concomitant]
  8. MAXALT [Concomitant]
  9. IBUPROFEN [Concomitant]
     Dosage: 600 MG, UNK
     Dates: start: 20100116
  10. AZITHROMYCIN [Concomitant]
     Dosage: 500 MG, UNK
     Dates: start: 20100123
  11. YAZ [Suspect]
     Indication: PREMENSTRUAL SYNDROME
     Dosage: UNK UNK, QD
     Route: 048
     Dates: start: 20060101, end: 20070101

REACTIONS (3)
  - CHOLECYSTITIS CHRONIC [None]
  - BILIARY COLIC [None]
  - INJURY [None]
